FAERS Safety Report 4336993-0 (Version None)
Quarter: 2004Q1

REPORT INFORMATION
  Report Type: 
  Country: None (occurrence: None)
  Receive Date: 20040329
  Receipt Date: 20040120
  Transmission Date: 20041129
  Serious: No
  Sender: FDA-Public Use
  Company Number: USA040157011

PATIENT
  Age: 44 Year
  Sex: Male

DRUGS (3)
  1. STRATTERA [Suspect]
     Indication: ATTENTION DEFICIT/HYPERACTIVITY DISORDER
     Dosage: 60 MG/DAY
     Dates: start: 20040101
  2. FLUOXETINE [Concomitant]
  3. WELLBUTRIN [Concomitant]

REACTIONS (3)
  - DRY MOUTH [None]
  - TREMOR [None]
  - URINARY HESITATION [None]
